FAERS Safety Report 9925709 (Version 1)
Quarter: 2014Q1

REPORT INFORMATION
  Report Type: Spontaneous
  Country: CH (occurrence: CH)
  Receive Date: 20140226
  Receipt Date: 20140226
  Transmission Date: 20141002
  Serious: Yes (Hospitalization)
  Sender: FDA-Public Use
  Company Number: CH-GLAXOSMITHKLINE-B0971849A

PATIENT
  Age: 27 Year
  Sex: Female

DRUGS (10)
  1. ZOFRAN [Suspect]
     Indication: PRODUCT USED FOR UNKNOWN INDICATION
     Route: 065
     Dates: start: 20140113, end: 20140113
  2. DAFALGAN [Suspect]
     Indication: ABDOMINAL PAIN
     Dosage: 1G FOUR TIMES PER DAY
     Route: 048
     Dates: start: 20140113, end: 20140116
  3. METHOTREXATE SODIUM [Suspect]
     Indication: ECTOPIC PREGNANCY
     Route: 030
     Dates: start: 20140107, end: 20140113
  4. CLINDAMYCINE [Suspect]
     Indication: PRODUCT USED FOR UNKNOWN INDICATION
     Dosage: 600MG SINGLE DOSE
     Route: 065
     Dates: start: 20140113, end: 20140113
  5. LIDOCAINE [Concomitant]
     Dosage: 30MG SINGLE DOSE
     Route: 065
     Dates: start: 20140113, end: 20140113
  6. PROPOFOL [Concomitant]
     Dosage: 251MG SINGLE DOSE
     Dates: start: 20140113, end: 20140113
  7. SUCCINYLCHOLINE [Concomitant]
     Dosage: 50MG PER DAY
     Dates: start: 20140113, end: 20140113
  8. DROPERIDOL [Concomitant]
     Dates: start: 20140113, end: 20140113
  9. SUFENTANIL [Concomitant]
     Dosage: 25MG SINGLE DOSE
     Dates: start: 20140113, end: 20140113
  10. EPHEDRINE [Concomitant]
     Dates: start: 20140113, end: 20140113

REACTIONS (1)
  - Hepatocellular injury [Recovering/Resolving]
